FAERS Safety Report 6282302-X (Version None)
Quarter: 2009Q3

REPORT INFORMATION
  Report Type: 
  Country: None (occurrence: None)
  Receive Date: 20090724
  Receipt Date: 20090721
  Transmission Date: 20100115
  Serious: Yes (Other)
  Sender: FDA-Public Use
  Company Number: US-ALLERGAN-0910210US

PATIENT
  Sex: Female

DRUGS (1)
  1. LUMIGAN [Suspect]
     Indication: DRUG USE FOR UNKNOWN INDICATION
     Dosage: UNK, UNKNOWN
     Route: 047

REACTIONS (7)
  - DYSPEPSIA [None]
  - ERYTHEMA OF EYELID [None]
  - EYE IRRITATION [None]
  - EYE PAIN [None]
  - EYELID OEDEMA [None]
  - HEPATIC FUNCTION ABNORMAL [None]
  - IMMUNE SYSTEM DISORDER [None]
